FAERS Safety Report 4386892-3 (Version None)
Quarter: 2004Q2

REPORT INFORMATION
  Report Type: 
  Country: None (occurrence: None)
  Receive Date: 20040623
  Receipt Date: 20040607
  Transmission Date: 20050107
  Serious: Yes (Other)
  Sender: FDA-Public Use
  Company Number: USA040669432

PATIENT

DRUGS (1)
  1. XIGRIS [Suspect]
     Dates: start: 20040602, end: 20040606

REACTIONS (1)
  - ATRIAL FIBRILLATION [None]
